FAERS Safety Report 9921359 (Version 3)
Quarter: 2014Q3

REPORT INFORMATION
  Report Type: Spontaneous
  Country: IE (occurrence: IE)
  Receive Date: 20140225
  Receipt Date: 20140708
  Transmission Date: 20150326
  Serious: Yes (Hospitalization, Other)
  Sender: FDA-Public Use
  Company Number: IE-AMGEN-IRLSP2014012329

PATIENT
  Age: 57 Year
  Sex: Male

DRUGS (8)
  1. ONE ALPHA [Concomitant]
     Active Substance: ALFACALCIDOL
  2. PREDNISONE. [Concomitant]
     Active Substance: PREDNISONE
  3. FOLIC ACID. [Concomitant]
     Active Substance: FOLIC ACID
  4. OMEPRAZOLE. [Concomitant]
     Active Substance: OMEPRAZOLE
  5. LOCERYL [Concomitant]
     Active Substance: AMOROLFINE HYDROCHLORIDE
  6. OPTAMOL [Concomitant]
  7. ARANESP [Suspect]
     Active Substance: DARBEPOETIN ALFA
     Indication: RENAL FAILURE CHRONIC
     Dosage: 40 MUG, QMO
     Route: 058
     Dates: start: 20130321
  8. ALLOPURINOL. [Concomitant]
     Active Substance: ALLOPURINOL

REACTIONS (7)
  - Post procedural contusion [Unknown]
  - Generalised tonic-clonic seizure [Not Recovered/Not Resolved]
  - Haemoglobin abnormal [Unknown]
  - Aortic valve repair [Unknown]
  - Hypoglycaemia [Not Recovered/Not Resolved]
  - Haemorrhage [Unknown]
  - Patent ductus arteriosus [Unknown]

NARRATIVE: CASE EVENT DATE: 20140103
